FAERS Safety Report 6599045-5 (Version None)
Quarter: 2010Q1

REPORT INFORMATION
  Report Type: 
  Country: None (occurrence: None)
  Receive Date: 20100224
  Receipt Date: 20090804
  Transmission Date: 20100710
  Serious: No
  Sender: FDA-Public Use
  Company Number: US-BRISTOL-MYERS SQUIBB COMPANY-14717995

PATIENT
  Age: 62 Year
  Sex: Female

DRUGS (2)
  1. GLUCOPHAGE [Suspect]
  2. LANTUS [Suspect]
     Indication: TYPE 2 DIABETES MELLITUS
     Dosage: LANTUS SOLUTION FOR INJECTION
     Route: 058

REACTIONS (1)
  - BLOOD GLUCOSE INCREASED [None]
